FAERS Safety Report 22597723 (Version 2)
Quarter: 2023Q2

REPORT INFORMATION
  Report Type: Spontaneous
  Country: CA (occurrence: CA)
  Receive Date: 20230614
  Receipt Date: 20230629
  Transmission Date: 20230722
  Serious: Yes (Other)
  Sender: FDA-Public Use
  Company Number: CA-ABBVIE-5287476

PATIENT
  Sex: Female

DRUGS (1)
  1. BOTOX [Suspect]
     Active Substance: ONABOTULINUMTOXINA
     Indication: Product used for unknown indication
     Dosage: TIME INTERVAL: AS NECESSARY
     Route: 030
     Dates: start: 202302, end: 202302

REACTIONS (5)
  - Stevens-Johnson syndrome [Recovered/Resolved]
  - Trigeminal nerve disorder [Recovered/Resolved]
  - Joint noise [Recovered/Resolved]
  - Trismus [Recovered/Resolved]
  - Muscle spasms [Recovered/Resolved]
